FAERS Safety Report 8373963-X (Version None)
Quarter: 2012Q2

REPORT INFORMATION
  Report Type: 
  Country: None (occurrence: None)
  Receive Date: 20120521
  Receipt Date: 20120515
  Transmission Date: 20120825
  Serious: Yes (Other)
  Sender: FDA-Public Use
  Company Number: PHHY2012KR041495

PATIENT
  Age: 6 Year
  Sex: Female

DRUGS (3)
  1. LAMOTRIGINE [Suspect]
     Dosage: 2.5 MG/KG, UNK
  2. LAMOTRIGINE [Suspect]
     Dosage: 2 MG/KG, UNK
  3. LAMOTRIGINE [Suspect]
     Indication: EPILEPSY
     Dosage: 0.5 MG/KG, UNK

REACTIONS (3)
  - RASH MACULO-PAPULAR [None]
  - ACTIVATED PARTIAL THROMBOPLASTIN TIME PROLONGED [None]
  - CONTUSION [None]
